FAERS Safety Report 23409061 (Version 1)
Quarter: 2024Q1

REPORT INFORMATION
  Report Type: Spontaneous
  Country: FR (occurrence: FR)
  Receive Date: 20240117
  Receipt Date: 20240117
  Transmission Date: 20240409
  Serious: Yes (Hospitalization, Other)
  Sender: FDA-Public Use
  Company Number: None

PATIENT
  Age: 80 Year
  Sex: Female
  Weight: 74.699 kg

DRUGS (10)
  1. CAPECITABINE [Suspect]
     Active Substance: CAPECITABINE
     Indication: Breast cancer
     Dosage: 2300 MG X2/D FOR 14 DAYS THEN STOPPED FOR 7 DAYS?DAILY DOSE: 4600 MILLIGRAM
     Route: 048
     Dates: start: 202309
  2. CAPECITABINE [Suspect]
     Active Substance: CAPECITABINE
     Indication: Breast cancer
     Dosage: 2300 MG X2/D FOR 14 DAYS THEN STOPPED FOR 7 DAYS?DAILY DOSE: 4600 MILLIGRAM
     Route: 048
     Dates: start: 20231109, end: 20231123
  3. PREDNISONE [Concomitant]
     Active Substance: PREDNISONE
     Dosage: DAILY DOSE: 10 MILLIGRAM
     Route: 048
  4. FOLIC ACID [Concomitant]
     Active Substance: FOLIC ACID
     Dosage: 1/WEEK
     Route: 048
  5. XGEVA [Concomitant]
     Active Substance: DENOSUMAB
     Dosage: 1/MONTH
     Route: 058
  6. DAFALGAN CODEINE [Concomitant]
     Active Substance: ACETAMINOPHEN\CODEINE PHOSPHATE
     Dosage: 500/30 MG, PO: 3/D
     Route: 048
  7. DAFALGAN CODEINE [Concomitant]
     Active Substance: ACETAMINOPHEN\CODEINE PHOSPHATE
  8. XARELTO [Concomitant]
     Active Substance: RIVAROXABAN
     Dosage: DAILY DOSE: 15 MILLIGRAM
     Route: 048
  9. METHOTREXATE SODIUM [Concomitant]
     Active Substance: METHOTREXATE SODIUM
     Dosage: PRE-FILLED SYRINGE
     Route: 058
  10. CALCIUM CARBONATE\CHOLECALCIFEROL [Concomitant]
     Active Substance: CALCIUM CARBONATE\CHOLECALCIFEROL
     Dosage: CACIT VIT D3 500/400 IU, PO: 1/D?DAILY DOSE: 1 DOSAGE FORM
     Route: 048

REACTIONS (9)
  - Diarrhoea [Recovered/Resolved]
  - Terminal ileitis [Recovered/Resolved]
  - Sepsis [Recovered/Resolved]
  - Pancytopenia [Not Recovered/Not Resolved]
  - Aphthous ulcer [Recovered/Resolved]
  - Dehydration [Recovered/Resolved]
  - Asthenia [Recovered/Resolved]
  - Acute kidney injury [Unknown]
  - Agranulocytosis [Not Recovered/Not Resolved]

NARRATIVE: CASE EVENT DATE: 20231125
